FAERS Safety Report 5367085-X (Version None)
Quarter: 2007Q2

REPORT INFORMATION
  Report Type: 
  Country: None (occurrence: None)
  Receive Date: 20070622
  Receipt Date: 20070619
  Transmission Date: 20071010
  Serious: Yes (Hospitalization)
  Sender: FDA-Public Use
  Company Number: Z0000216A

PATIENT
  Age: 51 Year
  Sex: Female
  Weight: 62.2 kg

DRUGS (2)
  1. LAPATINIB [Suspect]
     Route: 048
     Dates: start: 20060830
  2. TRASTUZUMAB [Suspect]
     Route: 042
     Dates: start: 20060830

REACTIONS (10)
  - ANOREXIA [None]
  - ARTHRALGIA [None]
  - BACK PAIN [None]
  - COUGH [None]
  - DIARRHOEA [None]
  - DYSPNOEA [None]
  - NAUSEA [None]
  - PAIN IN EXTREMITY [None]
  - VOMITING [None]
  - WEIGHT DECREASED [None]
